FAERS Safety Report 6520894-3 (Version None)
Quarter: 2009Q4

REPORT INFORMATION
  Report Type: 
  Country: None (occurrence: None)
  Receive Date: 20091229
  Receipt Date: 20091221
  Transmission Date: 20100525
  Serious: Yes (Other)
  Sender: FDA-Public Use
  Company Number: US-JNJFOC-20091206857

PATIENT
  Age: 85 Year
  Sex: Male
  Weight: 63.5 kg

DRUGS (3)
  1. EXTRA STRENGTH TYLENOL [Suspect]
     Route: 048
  2. EXTRA STRENGTH TYLENOL [Suspect]
     Indication: GROIN PAIN
     Route: 048
  3. PROSCAR [Concomitant]
     Indication: PROSTATIC DISORDER

REACTIONS (2)
  - DRUG INEFFECTIVE [None]
  - HALLUCINATION [None]
